FAERS Safety Report 22019352 (Version 2)
Quarter: 2023Q1

REPORT INFORMATION
  Report Type: Other
  Country: JP (occurrence: JP)
  Receive Date: 20230222
  Receipt Date: 20230223
  Transmission Date: 20230418
  Serious: Yes (Hospitalization, Disabling, Other)
  Sender: FDA-Public Use
  Company Number: JP-CHUGAI-2023004682AA

PATIENT
  Age: 72 Year
  Weight: 56.5 kg

DRUGS (3)
  1. OBINUTUZUMAB [Suspect]
     Active Substance: OBINUTUZUMAB
     Indication: Follicular lymphoma
     Dosage: 1000 MILLIGRAM, QD
     Route: 041
     Dates: start: 20211207, end: 20220427
  2. OBINUTUZUMAB [Suspect]
     Active Substance: OBINUTUZUMAB
     Dosage: 1000 MILLIGRAM, EVERY 8WEEKS
     Route: 041
     Dates: start: 20220614, end: 20221129
  3. BENDAMUSTINE HYDROCHLORIDE [Suspect]
     Active Substance: BENDAMUSTINE HYDROCHLORIDE
     Indication: Follicular lymphoma
     Dosage: 146 MILLIGRAM, QD
     Route: 041
     Dates: start: 20211207, end: 20220427

REACTIONS (2)
  - Myelodysplastic syndrome [Not Recovered/Not Resolved]
  - Renal impairment [Unknown]

NARRATIVE: CASE EVENT DATE: 20230123
